FAERS Safety Report 8091537-5 (Version None)
Quarter: 2012Q1

REPORT INFORMATION
  Report Type: 
  Country: None (occurrence: None)
  Receive Date: 20120129
  Receipt Date: 20110909
  Transmission Date: 20120608
  Serious: Yes (Hospitalization)
  Sender: FDA-Public Use
  Company Number: US-ABBOTT-11P-163-0853714-00

PATIENT
  Sex: Male
  Weight: 63.56 kg

DRUGS (4)
  1. APRISO [Suspect]
     Indication: CROHN'S DISEASE
     Dates: start: 20100101
  2. HUMIRA [Suspect]
     Indication: CROHN'S DISEASE
     Dates: start: 20080301, end: 20100601
  3. HUMIRA [Suspect]
     Indication: ANKYLOSING SPONDYLITIS
  4. CATAPRES [Concomitant]
     Indication: HYPERTENSION

REACTIONS (5)
  - SMALL INTESTINE ULCER [None]
  - ILEITIS [None]
  - PROSTATE CANCER [None]
  - PROCEDURAL PAIN [None]
  - CROHN'S DISEASE [None]
